FAERS Safety Report 7965032-5 (Version None)
Quarter: 2011Q4

REPORT INFORMATION
  Report Type: 
  Country: None (occurrence: None)
  Receive Date: 20111208
  Receipt Date: 20111126
  Transmission Date: 20120403
  Serious: Yes (Other)
  Sender: FDA-Public Use
  Company Number: US-BAYER-2011-113884

PATIENT
  Age: 18 Year
  Sex: Female

DRUGS (1)
  1. SAFYRAL [Suspect]
     Indication: CONTRACEPTION
     Dosage: UNK
     Dates: start: 20111101

REACTIONS (5)
  - VOMITING [None]
  - GENITAL HAEMORRHAGE [None]
  - PRURITUS [None]
  - SCRATCH [None]
  - DRUG HYPERSENSITIVITY [None]
